FAERS Safety Report 4459923-X (Version None)
Quarter: 2004Q3

REPORT INFORMATION
  Report Type: 
  Country: None (occurrence: None)
  Receive Date: 20040928
  Receipt Date: 20030905
  Transmission Date: 20050211
  Serious: No
  Sender: FDA-Public Use
  Company Number: US-GLAXOSMITHKLINE-A0424896A

PATIENT
  Age: 61 Year
  Sex: Female

DRUGS (4)
  1. SEREVENT [Suspect]
     Dosage: 1PUFF TWICE PER DAY
     Route: 055
     Dates: start: 20020901, end: 20021001
  2. ATROVENT [Concomitant]
  3. ALBUTEROL [Concomitant]
  4. FLOVENT [Concomitant]

REACTIONS (1)
  - DRUG INEFFECTIVE [None]
